FAERS Safety Report 25851567 (Version 2)
Quarter: 2025Q4

REPORT INFORMATION
  Report Type: Spontaneous
  Country: US (occurrence: US)
  Receive Date: 20250926
  Receipt Date: 20251103
  Transmission Date: 20260118
  Serious: No
  Sender: CIPLA
  Company Number: US-CIPLA LTD.-2025US11671

PATIENT

DRUGS (3)
  1. LANREOTIDE ACETATE [Suspect]
     Active Substance: LANREOTIDE ACETATE
     Indication: Carcinoid tumour of the small bowel
     Dosage: UNK (EVERY TWO WEEKS) (REGULAR USER), 120/0.5 MILLIGRAM PER MILLILITRE
     Route: 065
  2. LANREOTIDE ACETATE [Suspect]
     Active Substance: LANREOTIDE ACETATE
     Dosage: UNK (EVERY TWO WEEKS), 120/0.5 MILLIGRAM PER MILLILITRE
     Route: 065
     Dates: start: 20250720, end: 2025
  3. LANREOTIDE ACETATE [Suspect]
     Active Substance: LANREOTIDE ACETATE
     Dosage: UNK (NEW PRESCRIPTION), 120/0.5 MILLIGRAM PER MILLILITRE
     Route: 065
     Dates: start: 2025, end: 2025

REACTIONS (5)
  - Drug dose omission by device [Unknown]
  - Needle issue [Unknown]
  - Liquid product physical issue [Unknown]
  - Product quality issue [Unknown]
  - Injection site mass [Unknown]

NARRATIVE: CASE EVENT DATE: 20250101
